FAERS Safety Report 26035992 (Version 1)
Quarter: 2025Q4

REPORT INFORMATION
  Report Type: Spontaneous
  Country: JP (occurrence: JP)
  Receive Date: 20251112
  Receipt Date: 20251112
  Transmission Date: 20260118
  Serious: Yes (Hospitalization)
  Sender: PFIZER
  Company Number: JP-PFIZER INC-PV202500103894

PATIENT
  Age: 81 Year
  Sex: Female

DRUGS (1)
  1. ELREXFIO [Suspect]
     Active Substance: ELRANATAMAB-BCMM
     Dosage: 2ND COURSE(8 WEEKS) COMPLETED

REACTIONS (3)
  - COVID-19 [Recovered/Resolved]
  - Decreased appetite [Not Recovered/Not Resolved]
  - Performance status decreased [Unknown]

NARRATIVE: CASE EVENT DATE: 20250801
